FAERS Safety Report 5229908-4 (Version None)
Quarter: 2007Q1

REPORT INFORMATION
  Report Type: 
  Country: None (occurrence: None)
  Receive Date: 20070206
  Receipt Date: 20061201
  Transmission Date: 20070707
  Serious: No
  Sender: FDA-Public Use
  Company Number: US-GLAXOSMITHKLINE-A0629937A

PATIENT
  Age: 30 Year
  Sex: Female

DRUGS (6)
  1. PAXIL [Suspect]
     Indication: DEPRESSION
     Dosage: 30MG PER DAY
     Route: 048
     Dates: start: 20060601
  2. ZOLOFT [Concomitant]
  3. HYDROCHLOROTHIAZIDE [Concomitant]
  4. XANAX [Concomitant]
  5. FLEXERIL [Concomitant]
  6. VITAMIN CAP [Concomitant]

REACTIONS (14)
  - CRYING [None]
  - DIZZINESS [None]
  - DRUG WITHDRAWAL SYNDROME [None]
  - FATIGUE [None]
  - HEADACHE [None]
  - HOT FLUSH [None]
  - HYPERHIDROSIS [None]
  - INCREASED APPETITE [None]
  - MUSCLE SPASMS [None]
  - MUSCULOSKELETAL STIFFNESS [None]
  - NAUSEA [None]
  - NECK PAIN [None]
  - PANIC REACTION [None]
  - WEIGHT INCREASED [None]
